FAERS Safety Report 6554195-4 (Version None)
Quarter: 2010Q1

REPORT INFORMATION
  Report Type: 
  Country: None (occurrence: None)
  Receive Date: 20100127
  Receipt Date: 20100114
  Transmission Date: 20100710
  Serious: Yes (Other)
  Sender: FDA-Public Use
  Company Number: CL-WATSON-2010-00612

PATIENT
  Age: 13 Year
  Sex: Female

DRUGS (4)
  1. CYCLOSPORINE [Suspect]
     Indication: MYELODYSPLASTIC SYNDROME
     Dosage: 10 MG/KG, DAILY
  2. PREDNISONE TAB [Suspect]
     Indication: MYELODYSPLASTIC SYNDROME
     Dosage: 1 MG/KG, DAILY
  3. METHYLPREDNISOLONE ACETATE [Suspect]
     Indication: MYELODYSPLASTIC SYNDROME
     Dosage: 5 MG/KG, DAILY
  4. ESTROGEN NOS [Suspect]
     Indication: MYELODYSPLASTIC SYNDROME
     Dosage: UNK

REACTIONS (1)
  - PELIOSIS HEPATIS [None]
